FAERS Safety Report 7583953-2 (Version None)
Quarter: 2011Q2

REPORT INFORMATION
  Report Type: 
  Country: None (occurrence: None)
  Receive Date: 20110623
  Receipt Date: 20110608
  Transmission Date: 20111010
  Serious: Yes (Life-Threatening, Hospitalization, Other)
  Sender: FDA-Public Use
  Company Number: 2011MA006934

PATIENT
  Age: 78 Year
  Sex: Female

DRUGS (11)
  1. LIDOCAINE HCL [Suspect]
     Indication: THERAPEUTIC PROCEDURE
  2. ENOXAPARIN [Concomitant]
  3. ASPIRIN [Concomitant]
  4. METOPROLOL TARTRATE [Concomitant]
  5. MEPERIDINE HCL [Concomitant]
  6. PIOGLITAZONE [Concomitant]
  7. MIDAZOLAM HCL [Concomitant]
  8. CLOPIDOGREL [Concomitant]
  9. PANTOPRAZOLE [Concomitant]
  10. CLONIDINE [Concomitant]
  11. BENZOCAINE [Concomitant]

REACTIONS (8)
  - METHAEMOGLOBINAEMIA [None]
  - SINUS TACHYCARDIA [None]
  - UNRESPONSIVE TO STIMULI [None]
  - CYANOSIS [None]
  - RESPIRATORY FAILURE [None]
  - CARDIOMEGALY [None]
  - CONFUSIONAL STATE [None]
  - LEFT VENTRICULAR HYPERTROPHY [None]
